FAERS Safety Report 4524933-0 (Version None)
Quarter: 2004Q4

REPORT INFORMATION
  Report Type: 
  Country: None (occurrence: None)
  Receive Date: 20041117
  Receipt Date: 20030529
  Transmission Date: 20050328
  Serious: Yes (Hospitalization, Other)
  Sender: FDA-Public Use
  Company Number: C2003-1324.01

PATIENT
  Age: 45 Year
  Sex: Female

DRUGS (6)
  1. CLOZAPINE [Suspect]
     Indication: SCHIZOAFFECTIVE DISORDER
     Dosage: 100MG Q AM, 200 MG Q HS, ORAL
     Route: 048
     Dates: start: 20030402, end: 20030521
  2. FLUPHENAZINE [Concomitant]
  3. FLUPHENAZINE DECONOATE [Concomitant]
  4. TRAZODONE HCL [Concomitant]
  5. VENLAFAXINE ER [Concomitant]
  6. AZITHROMYCIN [Concomitant]

REACTIONS (3)
  - DYSPNOEA [None]
  - LIVER FUNCTION TEST ABNORMAL [None]
  - PNEUMONIA [None]
